FAERS Safety Report 4645893-8 (Version None)
Quarter: 2005Q2

REPORT INFORMATION
  Report Type: 
  Country: None (occurrence: None)
  Receive Date: 20050425
  Receipt Date: 20050411
  Transmission Date: 20051028
  Serious: Yes (Death)
  Sender: FDA-Public Use
  Company Number: IE-2005-003702

PATIENT
  Sex: Male

DRUGS (1)
  1. CAMPATH [Suspect]
     Indication: CHRONIC LYMPHOCYTIC LEUKAEMIA
     Dosage: INTRAVENOUS
     Route: 042
     Dates: start: 20050101, end: 20050309

REACTIONS (2)
  - ACUTE MYOCARDIAL INFARCTION [None]
  - THROMBOCYTOPENIA [None]
